FAERS Safety Report 6825406-2 (Version None)
Quarter: 2010Q3

REPORT INFORMATION
  Report Type: 
  Country: None (occurrence: None)
  Receive Date: 20100708
  Receipt Date: 20061206
  Transmission Date: 20110219
  Serious: No
  Sender: FDA-Public Use
  Company Number: US-PFIZER INC-2006153539

PATIENT
  Age: 42 Year
  Sex: Female

DRUGS (1)
  1. CHANTIX [Suspect]
     Dates: start: 20061205, end: 20061205

REACTIONS (3)
  - FATIGUE [None]
  - HYPOAESTHESIA [None]
  - INSOMNIA [None]
